FAERS Safety Report 12000513 (Version 1)
Quarter: 2016Q1

REPORT INFORMATION
  Report Type: Spontaneous
  Country: US (occurrence: None)
  Receive Date: 20160203
  Receipt Date: 20160203
  Transmission Date: 20160526
  Serious: Yes (Other)
  Sender: FDA-Public Use
  Company Number: None

PATIENT
  Age: 42 Year
  Sex: Female
  Weight: 190.06 kg

DRUGS (1)
  1. TANZEUM [Suspect]
     Active Substance: ALBIGLUTIDE
     Indication: DIABETES MELLITUS
     Dosage: 30MG  ONCE WEEKLY  INJECTABLE
     Dates: start: 201504, end: 201508

REACTIONS (5)
  - Pruritus [None]
  - Scab [None]
  - Scar [None]
  - Dry skin [None]
  - Injection site rash [None]
